FAERS Safety Report 21487864 (Version 1)
Quarter: 2022Q4

REPORT INFORMATION
  Report Type: Spontaneous
  Country: US (occurrence: US)
  Receive Date: 20221020
  Receipt Date: 20221020
  Transmission Date: 20230113
  Serious: Yes (Other)
  Sender: FDA-Public Use
  Company Number: US-ALLERGAN-2216274US

PATIENT
  Sex: Male
  Weight: 86.168 kg

DRUGS (3)
  1. LINZESS [Suspect]
     Active Substance: LINACLOTIDE
     Indication: Irritable bowel syndrome
     Dosage: UNK
     Dates: start: 20220602
  2. LINZESS [Suspect]
     Active Substance: LINACLOTIDE
     Dosage: 72 ?G
     Route: 048
     Dates: start: 202201, end: 202204
  3. UNSPECIFIED INGREDIENT [Concomitant]
     Active Substance: UNSPECIFIED INGREDIENT

REACTIONS (5)
  - Rectal haemorrhage [Unknown]
  - Gastrointestinal motility disorder [Unknown]
  - Rectal tenesmus [Unknown]
  - Therapy interrupted [Unknown]
  - Drug ineffective [Unknown]
